FAERS Safety Report 15493175 (Version 4)
Quarter: 2018Q4

REPORT INFORMATION
  Report Type: Spontaneous
  Country: PT (occurrence: PT)
  Receive Date: 20181012
  Receipt Date: 20181221
  Transmission Date: 20190205
  Serious: Yes (Other)
  Sender: FDA-Public Use
  Company Number: PT-LPDUSPRD-20181860

PATIENT
  Age: 49 Year
  Sex: Female
  Weight: 92 kg

DRUGS (1)
  1. FERINJECT [Suspect]
     Active Substance: FERRIC CARBOXYMALTOSE
     Dosage: 1 GM,1 IN 1 WK
     Route: 042
     Dates: start: 20180829, end: 20180829

REACTIONS (2)
  - Rash pruritic [Unknown]
  - Papule [Unknown]

NARRATIVE: CASE EVENT DATE: 20180829
